FAERS Safety Report 8818245 (Version 6)
Quarter: 2014Q2

REPORT INFORMATION
  Report Type: Spontaneous
  Country: US (occurrence: US)
  Receive Date: 20121001
  Receipt Date: 20140423
  Transmission Date: 20141212
  Serious: Yes (Hospitalization)
  Sender: FDA-Public Use
  Company Number: US-GLAXOSMITHKLINE-A0995148A

PATIENT
  Age: 21 Year
  Sex: Female

DRUGS (2)
  1. FLOLAN [Suspect]
     Indication: COR PULMONALE CHRONIC
     Dosage: 84NGKM CONTINUOUS
     Route: 065
     Dates: start: 20071123
  2. REVATIO [Concomitant]

REACTIONS (12)
  - Pneumonia [Recovered/Resolved]
  - Pulmonary hypertension [Unknown]
  - Device breakage [Recovered/Resolved]
  - Tachycardia [Recovered/Resolved]
  - Heart rate increased [Recovered/Resolved]
  - Dizziness [Recovered/Resolved]
  - Atrial flutter [Recovered/Resolved]
  - Atrioventricular block [Recovered/Resolved]
  - Vulvovaginal mycotic infection [Unknown]
  - Upper respiratory tract infection [Unknown]
  - Wheezing [Recovering/Resolving]
  - Cough [Unknown]
